FAERS Safety Report 20589620 (Version 3)
Quarter: 2022Q2

REPORT INFORMATION
  Report Type: Spontaneous
  Country: US (occurrence: None)
  Receive Date: 20220314
  Receipt Date: 20220429
  Transmission Date: 20220721
  Serious: No
  Sender: FDA-Public Use
  Company Number: 2022A092095

PATIENT
  Age: 45 Year
  Sex: Female
  Weight: 88.9 kg

DRUGS (3)
  1. BUDESONIDE\FORMOTEROL\GLYCOPYRRONIUM [Suspect]
     Active Substance: BUDESONIDE\FORMOTEROL\GLYCOPYRRONIUM
     Indication: COVID-19
     Dosage: 160/9/4.8MCG TWICE DAILY
     Route: 055
     Dates: start: 20210928
  2. BUDESONIDE\FORMOTEROL\GLYCOPYRRONIUM [Suspect]
     Active Substance: BUDESONIDE\FORMOTEROL\GLYCOPYRRONIUM
     Indication: Wheezing
     Dosage: 160/9/4.8MCG TWICE DAILY
     Route: 055
     Dates: start: 20210928
  3. BUDESONIDE\FORMOTEROL\GLYCOPYRRONIUM [Suspect]
     Active Substance: BUDESONIDE\FORMOTEROL\GLYCOPYRRONIUM
     Indication: Cough
     Dosage: 160/9/4.8MCG TWICE DAILY
     Route: 055
     Dates: start: 20210928

REACTIONS (11)
  - Psychomotor hyperactivity [Recovered/Resolved]
  - Feeling jittery [Recovered/Resolved]
  - Gait disturbance [Unknown]
  - Chest discomfort [Not Recovered/Not Resolved]
  - Tremor [Recovered/Resolved]
  - Drug dose omission by device [Not Recovered/Not Resolved]
  - Intentional product misuse [Not Recovered/Not Resolved]
  - Product use in unapproved indication [Unknown]
  - Therapeutic product effective for unapproved indication [Unknown]
  - Device use issue [Recovered/Resolved]
  - Device malfunction [Unknown]

NARRATIVE: CASE EVENT DATE: 20210101
